FAERS Safety Report 8632633 (Version 5)
Quarter: 2013Q4

REPORT INFORMATION
  Report Type: Report from Study
  Country: US (occurrence: US)
  Receive Date: 20120625
  Receipt Date: 20131016
  Transmission Date: 20140711
  Serious: Yes (Other)
  Sender: FDA-Public Use
  Company Number: US-ELI_LILLY_AND_COMPANY-US201206005541

PATIENT
  Age: 51 Year
  Sex: Female

DRUGS (4)
  1. TERIPARATIDE [Suspect]
     Indication: OSTEOPOROSIS
     Dosage: 20 UG, QD
     Dates: start: 20120510
  2. TERIPARATIDE [Suspect]
     Dosage: 20 UG, QD
  3. TERIPARATIDE [Suspect]
     Dosage: 20 UG, QD
  4. TERIPARATIDE [Suspect]
     Dosage: 20 UG, QD
     Dates: end: 20130831

REACTIONS (23)
  - Enzyme level increased [Unknown]
  - Diplegia [Unknown]
  - Drug dose omission [Unknown]
  - Headache [Unknown]
  - Injection site pain [Unknown]
  - Injection site pain [Unknown]
  - Hepatic enzyme increased [Unknown]
  - Fall [Unknown]
  - Depressed mood [Unknown]
  - Fall [Unknown]
  - Somnolence [Unknown]
  - Fatigue [Unknown]
  - Asthenia [Unknown]
  - Appetite disorder [Unknown]
  - Incontinence [Unknown]
  - Paraesthesia [Unknown]
  - Chronic obstructive pulmonary disease [Unknown]
  - Asthma [Unknown]
  - Dizziness [Unknown]
  - Injection site reaction [Unknown]
  - Wrong technique in drug usage process [Unknown]
  - Medication error [Unknown]
  - Nausea [Unknown]
